FAERS Safety Report 25481499 (Version 2)
Quarter: 2025Q3

REPORT INFORMATION
  Report Type: Spontaneous
  Country: JP (occurrence: JP)
  Receive Date: 20250626
  Receipt Date: 20250711
  Transmission Date: 20251020
  Serious: Yes (Death, Other)
  Sender: AMGEN
  Company Number: JP-KYOWAKIRIN-2025KK012003

PATIENT
  Age: 9 Decade
  Sex: Female

DRUGS (3)
  1. ROMIPLOSTIM [Suspect]
     Active Substance: ROMIPLOSTIM
     Indication: Aplastic anaemia
     Dosage: 20 UG/KG, 1X/WEEK
     Route: 058
     Dates: start: 20240202, end: 20250529
  2. NEORAL [Concomitant]
     Active Substance: CYCLOSPORINE
     Indication: Aplastic anaemia
     Route: 048
     Dates: end: 20250529
  3. DEFERASIROX [Concomitant]
     Active Substance: DEFERASIROX
     Indication: Aplastic anaemia
     Route: 048
     Dates: end: 20250529

REACTIONS (1)
  - Sudden death [Fatal]

NARRATIVE: CASE EVENT DATE: 20250601
